FAERS Safety Report 5914194-X (Version None)
Quarter: 2008Q3

REPORT INFORMATION
  Report Type: 
  Country: None (occurrence: None)
  Receive Date: 20080909
  Receipt Date: 20080312
  Transmission Date: 20090109
  Serious: Yes (Death)
  Sender: FDA-Public Use
  Company Number: 163-20785-08011128

PATIENT
  Age: 80 Year
  Sex: Male

DRUGS (3)
  1. THALOMID [Suspect]
     Indication: MULTIPLE MYELOMA
     Dosage: 50 FEG, 1 IN 1 D, ORAL ; 50 FEG, 1 IN 1 D, ORAL ; 100 MG, DAILY X28 DAYS, ORAL
     Route: 048
     Dates: start: 20070112, end: 20070101
  2. THALOMID [Suspect]
     Indication: MULTIPLE MYELOMA
     Dosage: 50 FEG, 1 IN 1 D, ORAL ; 50 FEG, 1 IN 1 D, ORAL ; 100 MG, DAILY X28 DAYS, ORAL
     Route: 048
     Dates: start: 20070821, end: 20070901
  3. THALOMID [Suspect]
     Indication: MULTIPLE MYELOMA
     Dosage: 50 FEG, 1 IN 1 D, ORAL ; 50 FEG, 1 IN 1 D, ORAL ; 100 MG, DAILY X28 DAYS, ORAL
     Route: 048
     Dates: start: 20071022, end: 20071101

REACTIONS (1)
  - MULTIPLE MYELOMA [None]
